FAERS Safety Report 4882503-9 (Version None)
Quarter: 2006Q1

REPORT INFORMATION
  Report Type: 
  Country: None (occurrence: None)
  Receive Date: 20060113
  Receipt Date: 20060103
  Transmission Date: 20060701
  Serious: Yes (Other)
  Sender: FDA-Public Use
  Company Number: 2006002205

PATIENT
  Age: 75 Year
  Sex: Male

DRUGS (5)
  1. VIAGRA [Suspect]
     Indication: ERECTILE DYSFUNCTION
  2. VASOTEC [Concomitant]
  3. ASPIRIN [Concomitant]
  4. PROBENECID [Concomitant]
  5. LIPITOR [Concomitant]

REACTIONS (5)
  - BLOOD PRESSURE DECREASED [None]
  - CHEST DISCOMFORT [None]
  - FLUSHING [None]
  - MULTIPLE MYELOMA [None]
  - STEM CELL TRANSPLANT [None]
